FAERS Safety Report 15564940 (Version 2)
Quarter: 2018Q4

REPORT INFORMATION
  Report Type: Spontaneous
  Country: US (occurrence: US)
  Receive Date: 20181030
  Receipt Date: 20181120
  Transmission Date: 20190205
  Serious: Yes (Other)
  Sender: FDA-Public Use
  Company Number: US-BAYER-2018-198794

PATIENT
  Sex: Male

DRUGS (4)
  1. MIRALAX [Suspect]
     Active Substance: POLYETHYLENE GLYCOL 3350
     Indication: BOWEL MOVEMENT IRREGULARITY
  2. STARCH [Concomitant]
     Active Substance: STARCH
     Dosage: UNK
  3. ENSURE [MINERALS NOS,VITAMINS NOS] [Concomitant]
     Dosage: UNK
  4. MIRALAX [Suspect]
     Active Substance: POLYETHYLENE GLYCOL 3350
     Indication: GASTROINTESTINAL DISORDER
     Dosage: 1 DF, QD
     Route: 065

REACTIONS (4)
  - Scoliosis [None]
  - Drug dependence [Unknown]
  - Pneumonia aspiration [Unknown]
  - Diarrhoea [Unknown]
